FAERS Safety Report 5054534-X (Version None)
Quarter: 2006Q3

REPORT INFORMATION
  Report Type: 
  Country: None (occurrence: None)
  Receive Date: 20060714
  Receipt Date: 20060706
  Transmission Date: 20061208
  Serious: Yes (Hospitalization)
  Sender: FDA-Public Use
  Company Number: 2006084665

PATIENT
  Sex: 0

DRUGS (3)
  1. LIPITOR [Suspect]
     Indication: HYPERCHOLESTEROLAEMIA
     Dosage: 10 MG (1 IN 1 D), ORAL
     Route: 048
     Dates: start: 20060301
  2. PLETAL [Suspect]
     Dosage: ORAL
     Route: 048
  3. ASPIRIN [Suspect]
     Dosage: ORAL
     Route: 048

REACTIONS (2)
  - DISSEMINATED INTRAVASCULAR COAGULATION [None]
  - PLATELET COUNT DECREASED [None]
